FAERS Safety Report 6167190-4 (Version None)
Quarter: 2009Q2

REPORT INFORMATION
  Report Type: 
  Country: None (occurrence: None)
  Receive Date: 20090424
  Receipt Date: 20090417
  Transmission Date: 20091009
  Serious: Yes (Life-Threatening)
  Sender: FDA-Public Use
  Company Number: DE-BAYER-200916443GPV

PATIENT
  Age: 64 Year
  Sex: Female

DRUGS (8)
  1. MOXIFLOXACIN HCL [Suspect]
     Indication: SEPSIS
     Dosage: TOTAL DAILY DOSE: 400 MG  UNIT DOSE: 400 MG
     Route: 041
     Dates: start: 20090302, end: 20090309
  2. MEROPENEM [Suspect]
     Indication: SEPSIS
     Dosage: TOTAL DAILY DOSE: 2000 MG
     Route: 041
     Dates: start: 20090302, end: 20090309
  3. NOREPINEPHRINE [Concomitant]
     Indication: SEPTIC SHOCK
     Route: 041
     Dates: start: 20090302, end: 20090305
  4. AMIODARONE [Concomitant]
     Indication: TACHYARRHYTHMIA
     Dosage: TOTAL DAILY DOSE: 300 MG  UNIT DOSE: 300 MG
     Route: 041
     Dates: start: 20090302, end: 20090302
  5. LINEZOLID [Concomitant]
     Indication: PNEUMONIA
     Route: 065
     Dates: start: 20090304, end: 20090310
  6. AMPICILLIN [Concomitant]
     Indication: BRONCHOPNEUMONIA
     Route: 065
     Dates: start: 20090226
  7. ROXITHROMYCIN [Concomitant]
     Indication: BRONCHOPNEUMONIA
     Route: 065
     Dates: start: 20090226
  8. TAZOBACTAM/PIPERACILLIN [Concomitant]
     Indication: BRONCHOPNEUMONIA

REACTIONS (3)
  - ELECTROMECHANICAL DISSOCIATION [None]
  - LOW CARDIAC OUTPUT SYNDROME [None]
  - RESUSCITATION [None]
